FAERS Safety Report 21313018 (Version 1)
Quarter: 2022Q3

REPORT INFORMATION
  Report Type: Report from Study
  Country: US (occurrence: US)
  Receive Date: 20220909
  Receipt Date: 20220909
  Transmission Date: 20221027
  Serious: Yes (Hospitalization, Other)
  Sender: FDA-Public Use
  Company Number: US-ASTELLAS-2022US031864

PATIENT
  Age: 87 Year
  Sex: Male

DRUGS (9)
  1. ENFORTUMAB VEDOTIN [Suspect]
     Active Substance: ENFORTUMAB VEDOTIN
     Indication: Bladder cancer
     Dosage: UNK UNK, UNKNOWN FREQ.
     Route: 065
  2. DURVALUMAB [Suspect]
     Active Substance: DURVALUMAB
     Indication: Bladder cancer
     Dosage: UNK UNK, UNKNOWN FREQ.
     Route: 065
  3. TREMELIMUMAB [Suspect]
     Active Substance: TREMELIMUMAB
     Indication: Bladder cancer
     Dosage: UNK UNK, UNKNOWN FREQ.
     Route: 065
  4. NIVOLUMAB [Suspect]
     Active Substance: NIVOLUMAB
     Indication: Bladder cancer
     Dosage: UNK UNK, UNKNOWN FREQ.
     Route: 065
  5. ATORVASTATIN [Concomitant]
     Active Substance: ATORVASTATIN
     Indication: Lung disorder
     Route: 048
     Dates: start: 2013
  6. REPAGLINIDE [Concomitant]
     Active Substance: REPAGLINIDE
     Indication: Diabetes mellitus
     Dosage: 0.5 MG, ONCE DAILY
     Route: 048
     Dates: start: 2021
  7. MONTELUKAST [Concomitant]
     Active Substance: MONTELUKAST SODIUM
     Indication: Chronic obstructive pulmonary disease
     Route: 048
     Dates: start: 2022
  8. HYDROCHLOROTHIAZIDE [Concomitant]
     Active Substance: HYDROCHLOROTHIAZIDE
     Indication: Hypertension
     Route: 048
     Dates: start: 2021
  9. BREO ELLIPTA [Concomitant]
     Active Substance: FLUTICASONE FUROATE\VILANTEROL TRIFENATATE
     Indication: Chronic obstructive pulmonary disease
     Route: 055
     Dates: start: 2022

REACTIONS (1)
  - Neutropenia [Not Recovered/Not Resolved]

NARRATIVE: CASE EVENT DATE: 20220824
